FAERS Safety Report 6037540-8 (Version None)
Quarter: 2009Q1

REPORT INFORMATION
  Report Type: 
  Country: None (occurrence: None)
  Receive Date: 20090114
  Receipt Date: 20090105
  Transmission Date: 20090719
  Serious: Yes (Other)
  Sender: FDA-Public Use
  Company Number: AU-ELI_LILLY_AND_COMPANY-AU200811000689

PATIENT
  Age: 76 Year
  Sex: Female

DRUGS (1)
  1. CYMBALTA [Suspect]
     Dosage: 60 MG, UNKNOWN
     Route: 065

REACTIONS (5)
  - FAECAL INCONTINENCE [None]
  - FEELING ABNORMAL [None]
  - SPINAL COLUMN STENOSIS [None]
  - URINARY INCONTINENCE [None]
  - URINARY TRACT INFECTION [None]
